FAERS Safety Report 5311873-2 (Version None)
Quarter: 2007Q2

REPORT INFORMATION
  Report Type: 
  Country: None (occurrence: None)
  Receive Date: 20070430
  Receipt Date: 20060421
  Transmission Date: 20071010
  Serious: No
  Sender: FDA-Public Use
  Company Number: 2006UW07606

PATIENT
  Sex: Female

DRUGS (3)
  1. NEXIUM [Suspect]
     Route: 048
  2. PRILOSEC OTC [Concomitant]
     Route: 048
  3. PREVACID [Concomitant]

REACTIONS (6)
  - ASTHENIA [None]
  - DYSPNOEA [None]
  - HEART RATE IRREGULAR [None]
  - NERVOUSNESS [None]
  - STOMACH DISCOMFORT [None]
  - VISUAL DISTURBANCE [None]
